FAERS Safety Report 23885616 (Version 1)
Quarter: 2024Q2

REPORT INFORMATION
  Report Type: Spontaneous
  Country: KR (occurrence: KR)
  Receive Date: 20240522
  Receipt Date: 20240522
  Transmission Date: 20240715
  Serious: Yes (Other)
  Sender: FDA-Public Use
  Company Number: KR-009507513-2405KOR005425

PATIENT
  Age: 62 Year
  Sex: Female

DRUGS (12)
  1. KEYTRUDA [Suspect]
     Active Substance: PEMBROLIZUMAB
     Indication: Breast cancer
     Dosage: UNK
     Dates: start: 20221219, end: 20221219
  2. KEYTRUDA [Suspect]
     Active Substance: PEMBROLIZUMAB
     Dosage: UNK
     Dates: start: 20230109, end: 20230109
  3. KEYTRUDA [Suspect]
     Active Substance: PEMBROLIZUMAB
     Dosage: UNK
     Dates: start: 20230130, end: 20230130
  4. KEYTRUDA [Suspect]
     Active Substance: PEMBROLIZUMAB
     Dosage: UNK
     Dates: start: 20230220, end: 20230220
  5. PACLITAXEL [Concomitant]
     Active Substance: PACLITAXEL
     Indication: Breast cancer
     Dosage: UNK
     Dates: start: 20221201, end: 20221201
  6. PACLITAXEL [Concomitant]
     Active Substance: PACLITAXEL
     Dosage: UNK
     Dates: start: 20221226, end: 20221226
  7. PACLITAXEL [Concomitant]
     Active Substance: PACLITAXEL
     Dosage: UNK
     Dates: start: 20230116, end: 20230116
  8. PACLITAXEL [Concomitant]
     Active Substance: PACLITAXEL
     Dosage: UNK
     Dates: start: 20230206, end: 20230206
  9. CARBOPLATIN [Concomitant]
     Active Substance: CARBOPLATIN
     Indication: Breast cancer
     Dosage: UNK
     Dates: start: 20221212, end: 20221212
  10. CARBOPLATIN [Concomitant]
     Active Substance: CARBOPLATIN
     Dosage: UNK
     Dates: start: 20230102, end: 20230102
  11. CARBOPLATIN [Concomitant]
     Active Substance: CARBOPLATIN
     Dosage: UNK
     Dates: start: 20230125, end: 20230125
  12. CARBOPLATIN [Concomitant]
     Active Substance: CARBOPLATIN
     Dosage: UNK
     Dates: start: 20230213, end: 20230213

REACTIONS (7)
  - Tubulointerstitial nephritis [Unknown]
  - Renal tubular injury [Unknown]
  - Immune-mediated dermatitis [Unknown]
  - Therapy partial responder [Unknown]
  - Malaise [Unknown]
  - Cystitis [Unknown]
  - Influenza [Unknown]

NARRATIVE: CASE EVENT DATE: 20221201
